FAERS Safety Report 7057265-X (Version None)
Quarter: 2010Q4

REPORT INFORMATION
  Report Type: 
  Country: None (occurrence: None)
  Receive Date: 20101022
  Receipt Date: 20101013
  Transmission Date: 20110411
  Serious: Yes (Life-Threatening, Other)
  Sender: FDA-Public Use
  Company Number: JP-PFIZER INC-2010129669

PATIENT
  Age: 60 Year
  Sex: Male

DRUGS (2)
  1. METHYLPREDNISOLONE [Suspect]
     Indication: ASTHMA
     Route: 065
  2. CEFAZOLIN [Suspect]

REACTIONS (4)
  - ANALGESIC ASTHMA SYNDROME [None]
  - BLOOD PRESSURE DECREASED [None]
  - DRUG HYPERSENSITIVITY [None]
  - HYPOVENTILATION [None]
